FAERS Safety Report 4300412-0 (Version None)
Quarter: 2004Q1

REPORT INFORMATION
  Report Type: 
  Country: None (occurrence: None)
  Receive Date: 20040220
  Receipt Date: 20040219
  Transmission Date: 20041129
  Serious: Yes (Death, Life-Threatening, Hospitalization)
  Sender: FDA-Public Use
  Company Number: US-BRISTOL-MYERS SQUIBB COMPANY-12511366

PATIENT
  Age: 70 Year
  Sex: Male
  Weight: 70 kg

DRUGS (10)
  1. CARBOPLATIN [Suspect]
     Indication: MESOTHELIOMA
     Dosage: AUC=5
     Route: 042
     Dates: start: 20030924, end: 20030924
  2. ALIMTA [Suspect]
     Indication: MESOTHELIOMA
     Route: 042
     Dates: start: 20030924, end: 20030924
  3. SELOKEN ZOC [Concomitant]
     Indication: HYPERTENSION
     Route: 048
     Dates: start: 19980101, end: 20031005
  4. DURAGESIC [Concomitant]
     Indication: PAIN
     Route: 062
     Dates: start: 20030601
  5. MORPHINE [Concomitant]
     Indication: PAIN
     Route: 048
     Dates: start: 20030601, end: 20031006
  6. COZAAR [Concomitant]
     Indication: HYPERTENSION
     Route: 048
     Dates: start: 20030701, end: 20031006
  7. PANTOZOL [Concomitant]
     Indication: OESOPHAGITIS
     Route: 048
     Dates: start: 20030601, end: 20031005
  8. FOLIC ACID [Concomitant]
     Indication: PROPHYLAXIS
     Route: 048
     Dates: start: 20030731, end: 20031005
  9. REDOMEX [Concomitant]
     Indication: PAIN
     Route: 048
     Dates: start: 20030601, end: 20031005
  10. NEURONTIN [Concomitant]
     Indication: PAIN
     Route: 048
     Dates: start: 20030601

REACTIONS (6)
  - ANOREXIA [None]
  - HYPOTENSION [None]
  - LEUKOPENIA [None]
  - PAIN [None]
  - SEPTIC SHOCK [None]
  - TACHYCARDIA [None]
